FAERS Safety Report 9948758 (Version 1)
Quarter: 2014Q1

REPORT INFORMATION
  Report Type: Report from Study
  Country: US (occurrence: US)
  Receive Date: 20140304
  Receipt Date: 20140304
  Transmission Date: 20141002
  Serious: Yes (Other)
  Sender: FDA-Public Use
  Company Number: US-ROCHE-1339232

PATIENT
  Sex: Female

DRUGS (13)
  1. LUCENTIS [Suspect]
     Indication: DIABETIC RETINAL OEDEMA
     Route: 050
  2. LUCENTIS [Suspect]
     Indication: DIABETIC RETINOPATHY
  3. AVASTIN [Suspect]
     Indication: DIABETIC RETINOPATHY
     Dosage: 25MG/ML
     Route: 050
  4. NEURONTIN (UNITED STATES) [Concomitant]
     Route: 048
  5. PEPCID [Concomitant]
     Route: 048
  6. MACROBID [Concomitant]
     Route: 048
  7. ASPIRIN [Concomitant]
     Route: 048
  8. FISH OIL [Concomitant]
     Route: 048
  9. METFORMIN [Concomitant]
     Route: 048
  10. BENAZEPRIL HYDROCHLORIDE [Concomitant]
     Route: 048
  11. PRAVASTATIN SODIUM [Concomitant]
     Route: 048
  12. GLYBURIDE [Concomitant]
     Route: 048
  13. ACIPHEX [Concomitant]
     Route: 048

REACTIONS (12)
  - Retinal oedema [Unknown]
  - Vitreous floaters [Unknown]
  - Discomfort [Unknown]
  - Headache [Unknown]
  - Metamorphopsia [Unknown]
  - Eye pain [Unknown]
  - Retinal exudates [Unknown]
  - Retinal haemorrhage [Unknown]
  - Visual acuity reduced [Unknown]
  - Dysuria [Unknown]
  - Localised infection [Unknown]
  - Off label use [Unknown]
